FAERS Safety Report 6487262-4 (Version None)
Quarter: 2009Q4

REPORT INFORMATION
  Report Type: 
  Country: None (occurrence: None)
  Receive Date: 20091210
  Receipt Date: 20091110
  Transmission Date: 20100525
  Serious: No
  Sender: FDA-Public Use
  Company Number: US-JNJFOC-20091103439

PATIENT
  Sex: Male
  Weight: 58.06 kg

DRUGS (2)
  1. INVEGA [Suspect]
     Indication: AUTISM
     Route: 048
  2. GEODON [Concomitant]
     Indication: SLEEP DISORDER
     Route: 048

REACTIONS (2)
  - MOOD SWINGS [None]
  - SLUGGISHNESS [None]
